FAERS Safety Report 10021904 (Version 2)
Quarter: 2014Q2

REPORT INFORMATION
  Report Type: Spontaneous
  Country: US (occurrence: US)
  Receive Date: 20140319
  Receipt Date: 20140516
  Transmission Date: 20141212
  Serious: Yes (Hospitalization)
  Sender: FDA-Public Use
  Company Number: US-GLAXOSMITHKLINE-A1064350A

PATIENT
  Age: 45 Year
  Sex: Female

DRUGS (10)
  1. BENLYSTA [Suspect]
     Indication: SYSTEMIC LUPUS ERYTHEMATOSUS
     Route: 042
     Dates: start: 2012
  2. COUMADIN [Suspect]
     Indication: HEART VALVE REPLACEMENT
     Route: 048
     Dates: start: 2001
  3. PREDNISONE [Concomitant]
  4. METHOTREXATE [Concomitant]
  5. PLAQUENIL [Concomitant]
  6. SIMVASTATIN [Concomitant]
  7. DIOVAN [Concomitant]
  8. NEXIUM [Concomitant]
  9. LYRICA [Concomitant]
  10. HEPARIN [Concomitant]

REACTIONS (5)
  - Oropharyngeal pain [Recovering/Resolving]
  - Pharyngeal cyst [Recovering/Resolving]
  - Infection [Recovering/Resolving]
  - International normalised ratio increased [Recovering/Resolving]
  - International normalised ratio decreased [Recovering/Resolving]
